FAERS Safety Report 4753488-0 (Version None)
Quarter: 2005Q3

REPORT INFORMATION
  Report Type: 
  Country: None (occurrence: None)
  Receive Date: 20050824
  Receipt Date: 20050817
  Transmission Date: 20060218
  Serious: Yes (Congenital Anomaly, Other)
  Sender: FDA-Public Use
  Company Number: HQWYE625123JUN05

PATIENT
  Sex: Female

DRUGS (2)
  1. EFFEXOR XR [Suspect]
     Indication: MAJOR DEPRESSION
     Dosage: 150 MG 1X PER 1 DAY, TRANSPLACENTAL
     Route: 064
     Dates: start: 20030513
  2. MULTIVITAMIN W/MINERALS (MINERALS NOS/VITAMINS NOS)` [Concomitant]

REACTIONS (3)
  - CONGENITAL ANOMALY [None]
  - DRUG EXPOSURE DURING PREGNANCY [None]
  - HIP DYSPLASIA [None]
